FAERS Safety Report 20309592 (Version 1)
Quarter: 2022Q1

REPORT INFORMATION
  Report Type: Spontaneous
  Country: IN (occurrence: None)
  Receive Date: 20220106
  Receipt Date: 20220106
  Transmission Date: 20220423
  Serious: Yes (Life-Threatening, Disabling, Other)
  Sender: FDA-Public Use
  Company Number: None

PATIENT
  Age: 41 Year
  Sex: Female
  Weight: 60 kg

DRUGS (2)
  1. MEDROXYPROGESTERONE ACETATE [Suspect]
     Active Substance: MEDROXYPROGESTERONE ACETATE
     Indication: Intentional product misuse
  2. MISOPROSTOL [Suspect]
     Active Substance: MISOPROSTOL
     Indication: Intentional product misuse

REACTIONS (33)
  - Dysmenorrhoea [None]
  - Uterine malposition [None]
  - Urinary tract disorder [None]
  - Muscle spasms [None]
  - Abdominal pain [None]
  - Asthenia [None]
  - Fatigue [None]
  - Loss of consciousness [None]
  - Mobility decreased [None]
  - Hypokinesia [None]
  - Urinary incontinence [None]
  - Feeling cold [None]
  - Abdominal pain [None]
  - Gastrointestinal disorder [None]
  - Muscle spasms [None]
  - Dysmenorrhoea [None]
  - Suspected counterfeit product [None]
  - Product administration error [None]
  - Stress [None]
  - Schizophrenia [None]
  - Endometrial atrophy [None]
  - Thyroid disorder [None]
  - Unhealthy diet [None]
  - Headache [None]
  - Cerebral disorder [None]
  - Angiopathy [None]
  - Bacterial infection [None]
  - Oropharyngeal pain [None]
  - Ear infection [None]
  - Central nervous system infection [None]
  - Cranial nerve disorder [None]
  - Adverse drug reaction [None]
  - Intentional product misuse [None]

NARRATIVE: CASE EVENT DATE: 20160920
